FAERS Safety Report 5079635-1 (Version None)
Quarter: 2006Q3

REPORT INFORMATION
  Report Type: 
  Country: None (occurrence: None)
  Receive Date: 20060814
  Receipt Date: 20060802
  Transmission Date: 20061208
  Serious: Yes (Death)
  Sender: FDA-Public Use
  Company Number: US-AMGEN-US188706

PATIENT

DRUGS (1)
  1. NEUPOGEN [Suspect]
     Indication: CHEMOTHERAPY

REACTIONS (1)
  - DEATH [None]
